FAERS Safety Report 9255256 (Version 1)
Quarter: 2013Q1

REPORT INFORMATION
  Report Type: Spontaneous
  Country: US (occurrence: None)
  Receive Date: 20121212
  Receipt Date: 20121212
  Transmission Date: 20140127
  Serious: No
  Sender: FDA-Public Use
  Company Number: 1209USA010719

PATIENT
  Age: 58 Year
  Sex: Male

DRUGS (3)
  1. PEG-INTRON [Suspect]
     Indication: HEPATITIS C
     Dates: start: 20120810
  2. REBETOL [Suspect]
  3. VICTRELIS [Suspect]

REACTIONS (6)
  - Vision blurred [None]
  - Eye irritation [None]
  - Malaise [None]
  - Fatigue [None]
  - Aphagia [None]
  - Haemoglobin decreased [None]
